FAERS Safety Report 20332522 (Version 1)
Quarter: 2022Q1

REPORT INFORMATION
  Report Type: Spontaneous
  Country: US (occurrence: None)
  Receive Date: 20220113
  Receipt Date: 20220113
  Transmission Date: 20220423
  Serious: Yes (Life-Threatening)
  Sender: FDA-Public Use
  Company Number: None

PATIENT
  Age: 17 Year
  Sex: Male
  Weight: 82.8 kg

DRUGS (2)
  1. .DELTA.8-TETRAHYDROCANNABINOL\HERBALS [Suspect]
     Active Substance: .DELTA.8-TETRAHYDROCANNABINOL\HERBALS
     Dates: start: 20220110, end: 20220110
  2. NATURELO WHOLE FOOD MULTIVITAMIN FOR MEN [Concomitant]

REACTIONS (8)
  - Poisoning [None]
  - Vision blurred [None]
  - Disturbance in attention [None]
  - Heart rate increased [None]
  - Blood pressure increased [None]
  - Diplopia [None]
  - Feeling abnormal [None]
  - Dry mouth [None]

NARRATIVE: CASE EVENT DATE: 20220110
